FAERS Safety Report 17584680 (Version 1)
Quarter: 2020Q1

REPORT INFORMATION
  Report Type: Spontaneous
  Country: US (occurrence: US)
  Receive Date: 20200324
  Receipt Date: 20200324
  Transmission Date: 20200409
  Serious: Yes (Hospitalization)
  Sender: FDA-Public Use
  Company Number: None

PATIENT
  Age: 53 Year
  Sex: Female

DRUGS (18)
  1. OTREXUP [Concomitant]
     Active Substance: METHOTREXATE
  2. NIFEDIPINE. [Concomitant]
     Active Substance: NIFEDIPINE
  3. MODAFINIL. [Concomitant]
     Active Substance: MODAFINIL
  4. TIZANIDINE. [Concomitant]
     Active Substance: TIZANIDINE
  5. FOLIC ACID. [Concomitant]
     Active Substance: FOLIC ACID
  6. ZOLPIDEM [Concomitant]
     Active Substance: ZOLPIDEM TARTRATE
  7. LEVETIRACETA [Concomitant]
  8. CLONAZEPAM. [Concomitant]
     Active Substance: CLONAZEPAM
  9. CITALOPRAM [Concomitant]
     Active Substance: CITALOPRAM HYDROBROMIDE
  10. XELJANZ XR [Suspect]
     Active Substance: TOFACITINIB CITRATE
     Indication: PSORIATIC ARTHROPATHY
     Route: 048
     Dates: start: 20190201
  11. PANTOPRAZOLE [Concomitant]
     Active Substance: PANTOPRAZOLE
  12. LOSARTAN. [Concomitant]
     Active Substance: LOSARTAN
  13. HYDROCO/APAP [Concomitant]
     Active Substance: ACETAMINOPHEN\HYDROCODONE
  14. CELECOXIB. [Concomitant]
     Active Substance: CELECOXIB
  15. METOPROLOL SUCCINATE. [Concomitant]
     Active Substance: METOPROLOL SUCCINATE
  16. METHOCARBAM [Concomitant]
     Active Substance: METHOCARBAMOL
  17. EZETIMIBE. [Concomitant]
     Active Substance: EZETIMIBE
  18. DICLOFENAC [Concomitant]
     Active Substance: DICLOFENAC

REACTIONS (1)
  - Clostridium difficile colitis [None]

NARRATIVE: CASE EVENT DATE: 20200306
